FAERS Safety Report 5644430-9 (Version None)
Quarter: 2008Q1

REPORT INFORMATION
  Report Type: 
  Country: None (occurrence: None)
  Receive Date: 20080229
  Receipt Date: 20080227
  Transmission Date: 20080703
  Serious: Yes (Hospitalization)
  Sender: FDA-Public Use
  Company Number: FR-WYE-G01152908

PATIENT
  Sex: Male

DRUGS (36)
  1. TAZOCILLINE [Suspect]
     Dosage: UNKNOWN
     Route: 042
     Dates: start: 20071219, end: 20071228
  2. PERFALGAN [Suspect]
     Dosage: UNKNOWN
     Route: 042
     Dates: start: 20071227, end: 20080107
  3. ASPEGIC 1000 [Suspect]
     Dosage: UNKNOWN
     Dates: start: 20071219, end: 20071227
  4. LOVENOX [Concomitant]
     Dosage: UNKNOWN
     Route: 058
     Dates: start: 20071219
  5. INSULIN [Concomitant]
     Dosage: UNKNOWN
     Route: 058
     Dates: start: 20071227
  6. LASILIX [Concomitant]
     Dosage: UNKNOWN
     Route: 048
     Dates: end: 20071218
  7. LASILIX [Concomitant]
     Dosage: UNKNOWN
     Route: 048
     Dates: start: 20071227
  8. SIMVASTATIN [Concomitant]
     Dosage: UNKNOWN
     Route: 048
     Dates: end: 20071218
  9. SIMVASTATIN [Concomitant]
     Dosage: UNKNOWN
     Route: 048
     Dates: start: 20071227
  10. ODRIK [Concomitant]
     Dosage: UNKNOWN
     Dates: end: 20071218
  11. ODRIK [Concomitant]
     Dosage: UNKNOWN
     Dates: start: 20071227
  12. CARDENSIEL [Concomitant]
     Dosage: UNKNOWN
     Dates: end: 20071218
  13. CARDENSIEL [Concomitant]
     Dosage: UNKNOWN
     Dates: start: 20071227
  14. DIGOXIN [Concomitant]
     Dosage: UNKNOWN
     Dates: end: 20071218
  15. DIGOXIN [Concomitant]
     Dosage: UNKNOWN
     Dates: start: 20071227
  16. EUPRESSYL [Concomitant]
     Dosage: UNKNOWN
     Dates: end: 20071218
  17. EUPRESSYL [Concomitant]
     Dosage: UNKNOWN
     Dates: start: 20071227
  18. XATRAL [Concomitant]
     Dosage: UNKNOWN
     Dates: end: 20071218
  19. XATRAL [Concomitant]
     Dosage: UNKNOWN
     Dates: start: 20071227
  20. EFFEXOR [Concomitant]
     Dosage: UNKNOWN
     Dates: end: 20071218
  21. EFFEXOR [Concomitant]
     Dosage: UNKNOWN
     Dates: start: 20071227
  22. METFORMIN HCL [Concomitant]
     Dosage: UNKNOWN
     Dates: end: 20071218
  23. METFORMIN HCL [Concomitant]
     Dosage: UNKNOWN
     Dates: start: 20071227
  24. NOVONORM [Concomitant]
     Dosage: UNKNOWN
     Dates: end: 20071218
  25. NOVONORM [Concomitant]
     Dosage: UNKNOWN
     Dates: start: 20071227
  26. ZOPICLONE [Concomitant]
     Dosage: UNKNOWN
  27. TRAMADOL HCL [Concomitant]
     Dosage: UNKNOWN
  28. SPASFON [Concomitant]
     Dosage: UNKNOWN
  29. HYPNOVEL [Concomitant]
     Dosage: UNKNOWN
  30. SUXAMETHONIUM IODIDE [Concomitant]
     Dosage: UNKNOWN
  31. FLAGYL [Concomitant]
     Dosage: UNKNOWN
  32. TRANXENE [Concomitant]
     Dosage: UNKNOWN
  33. HALDOL [Concomitant]
     Dosage: UNKNOWN
     Dates: start: 20071219, end: 20071222
  34. HALDOL [Concomitant]
     Dosage: UNKNOWN
     Dates: start: 20071226, end: 20071229
  35. HALDOL [Concomitant]
     Dosage: UNKNOWN
     Dates: start: 20071231, end: 20080107
  36. GENTAMICIN [Suspect]
     Dosage: UNKNOWN
     Route: 042
     Dates: start: 20071218, end: 20071220

REACTIONS (1)
  - VASCULAR PURPURA [None]
